FAERS Safety Report 6483778-5 (Version None)
Quarter: 2009Q4

REPORT INFORMATION
  Report Type: 
  Country: None (occurrence: None)
  Receive Date: 20091209
  Receipt Date: 20090505
  Transmission Date: 20100525
  Serious: No
  Sender: FDA-Public Use
  Company Number: US-AMGEN-KDL345824

PATIENT
  Sex: Female

DRUGS (2)
  1. ENBREL [Suspect]
     Indication: RHEUMATOID ARTHRITIS
     Route: 058
     Dates: start: 20000420, end: 20090318
  2. METHOTREXATE [Concomitant]

REACTIONS (9)
  - ARTHRALGIA [None]
  - DIARRHOEA [None]
  - DIZZINESS [None]
  - FATIGUE [None]
  - HAND DEFORMITY [None]
  - HEADACHE [None]
  - JOINT SWELLING [None]
  - MUSCULOSKELETAL PAIN [None]
  - PAIN [None]
